FAERS Safety Report 22530008 (Version 2)
Quarter: 2023Q2

REPORT INFORMATION
  Report Type: Spontaneous
  Country: GB (occurrence: GB)
  Receive Date: 20230607
  Receipt Date: 20230615
  Transmission Date: 20230721
  Serious: Yes (Other)
  Sender: FDA-Public Use
  Company Number: None

PATIENT
  Sex: Male

DRUGS (1)
  1. RISPERIDONE [Suspect]
     Active Substance: RISPERIDONE
     Indication: Insomnia
     Route: 065

REACTIONS (3)
  - Seizure [Not Recovered/Not Resolved]
  - Akathisia [Not Recovered/Not Resolved]
  - Drug ineffective [Unknown]
